FAERS Safety Report 6935642-2 (Version None)
Quarter: 2010Q3

REPORT INFORMATION
  Report Type: 
  Country: None (occurrence: None)
  Receive Date: 20100823
  Receipt Date: 20100810
  Transmission Date: 20110219
  Serious: No
  Sender: FDA-Public Use
  Company Number: PHHY2010US46831

PATIENT
  Sex: Male

DRUGS (2)
  1. TASIGNA [Suspect]
     Indication: CHRONIC MYELOID LEUKAEMIA
     Dosage: 200 MG, BID
     Dates: start: 20090210
  2. ASPIRIN [Concomitant]

REACTIONS (1)
  - LABELLED DRUG-FOOD INTERACTION MEDICATION ERROR [None]
